FAERS Safety Report 15766039 (Version 1)
Quarter: 2018Q4

REPORT INFORMATION
  Report Type: Spontaneous
  Country: US (occurrence: US)
  Receive Date: 20181227
  Receipt Date: 20181227
  Transmission Date: 20190205
  Serious: No
  Sender: FDA-Public Use
  Company Number: US-MYLANLABS-2018M1090372

PATIENT

DRUGS (2)
  1. TIMOLOL MALEATE TABLETS, USP [Suspect]
     Active Substance: TIMOLOL MALEATE
     Indication: MIGRAINE
  2. TIMOLOL MALEATE TABLETS, USP [Suspect]
     Active Substance: TIMOLOL MALEATE
     Indication: HEART RATE IRREGULAR
     Dosage: 5 MILLIGRAM
     Route: 048

REACTIONS (3)
  - Off label use [Not Recovered/Not Resolved]
  - Rash [Recovered/Resolved]
  - Fungal infection [Recovered/Resolved]
